FAERS Safety Report 6487308-3 (Version None)
Quarter: 2009Q4

REPORT INFORMATION
  Report Type: 
  Country: None (occurrence: None)
  Receive Date: 20091210
  Receipt Date: 20091208
  Transmission Date: 20100525
  Serious: No
  Sender: FDA-Public Use
  Company Number: US-ROXANE LABORATORIES, INC.-2009-RO-01244RO

PATIENT
  Sex: Female

DRUGS (3)
  1. CALCITRIOL [Suspect]
     Indication: RICKETS
     Dosage: 7.5 MG
     Route: 048
  2. CALCITRIOL [Suspect]
     Dosage: 0.5 MG
     Route: 048
  3. POTASSIUM PHOSPHATES [Suspect]
     Indication: RICKETS
     Route: 048

REACTIONS (1)
  - NEPHROLITHIASIS [None]
